FAERS Safety Report 23874179 (Version 2)
Quarter: 2024Q2

REPORT INFORMATION
  Report Type: Spontaneous
  Country: SV (occurrence: SV)
  Receive Date: 20240520
  Receipt Date: 20240530
  Transmission Date: 20240715
  Serious: Yes (Death, Hospitalization)
  Sender: FDA-Public Use
  Company Number: SV-002147023-NVSC2024SV105343

PATIENT
  Sex: Female

DRUGS (1)
  1. GLIVEC [Suspect]
     Active Substance: IMATINIB MESYLATE
     Indication: Gastrointestinal stromal tumour
     Dosage: 400 MG (1 X 400MG)
     Route: 048
     Dates: start: 201911

REACTIONS (3)
  - Peritonitis [Fatal]
  - Fall [Unknown]
  - Limb injury [Unknown]
